FAERS Safety Report 16009058 (Version 1)
Quarter: 2019Q1

REPORT INFORMATION
  Report Type: Spontaneous
  Country: CN (occurrence: CN)
  Receive Date: 20190226
  Receipt Date: 20190226
  Transmission Date: 20190418
  Serious: Yes (Hospitalization)
  Sender: FDA-Public Use
  Company Number: CN-NOVOPROD-647888

PATIENT
  Age: 73 Year
  Sex: Female
  Weight: 82 kg

DRUGS (1)
  1. NOVOMIX 30 PENFILL [Suspect]
     Active Substance: INSULIN ASPART
     Indication: TYPE 2 DIABETES MELLITUS
     Dosage: 18 IU, TID
     Route: 058
     Dates: start: 20180511

REACTIONS (1)
  - Obesity [Unknown]

NARRATIVE: CASE EVENT DATE: 201805
